FAERS Safety Report 25551098 (Version 1)
Quarter: 2025Q3

REPORT INFORMATION
  Report Type: Spontaneous
  Country: US (occurrence: US)
  Receive Date: 20250714
  Receipt Date: 20250714
  Transmission Date: 20251021
  Serious: No
  Sender: INCYTE
  Company Number: US-EVENT-003313

PATIENT

DRUGS (1)
  1. OPZELURA [Suspect]
     Active Substance: RUXOLITINIB PHOSPHATE
     Indication: Eczema
     Route: 065

REACTIONS (2)
  - Product distribution issue [Unknown]
  - Product dose omission issue [Unknown]
